FAERS Safety Report 5390011-4 (Version None)
Quarter: 2007Q3

REPORT INFORMATION
  Report Type: 
  Country: None (occurrence: None)
  Receive Date: 20070713
  Receipt Date: 20070711
  Transmission Date: 20080115
  Serious: Yes (Life-Threatening)
  Sender: FDA-Public Use
  Company Number: 2007S1000110

PATIENT
  Age: 2 Day
  Sex: Female
  Weight: 1.22 kg

DRUGS (5)
  1. NITRIC OXIDE [Suspect]
     Indication: LUNG DISORDER
     Dosage: 5 PPM; CONT; INH
     Route: 055
     Dates: start: 20070505, end: 20070513
  2. AMPICILLIN [Concomitant]
  3. GENTAMICIN [Concomitant]
  4. MIDAZOLAM HCL [Concomitant]
  5. DOPAMINE HCL [Concomitant]

REACTIONS (1)
  - CEREBRAL HAEMORRHAGE NEONATAL [None]
